FAERS Safety Report 4552286-0 (Version None)
Quarter: 2005Q1

REPORT INFORMATION
  Report Type: 
  Country: None (occurrence: None)
  Receive Date: 20050112
  Receipt Date: 20041224
  Transmission Date: 20050727
  Serious: Yes (Hospitalization)
  Sender: FDA-Public Use
  Company Number: US_0411107928

PATIENT
  Age: 57 Year
  Sex: Female
  Weight: 77 kg

DRUGS (15)
  1. HUMATROPE [Suspect]
     Indication: BLOOD GROWTH HORMONE DECREASED
     Dosage: 0.5 MG/1 DAY
     Dates: start: 19971001
  2. ZOCOR (SIMVASTATIN RATIOPHARM) [Concomitant]
  3. LEVOXYL [Concomitant]
  4. HYDROCHLOROTHIAZIDE [Concomitant]
  5. PREMPRO [Concomitant]
  6. BETOPIC (BETAMETHASONE) [Concomitant]
  7. HYDROCORTISONE [Concomitant]
  8. ASPIRIN (ACETAYLSALICYLIC ACID) [Concomitant]
  9. MULTI-VITAMIN [Concomitant]
  10. VITAMIN C [Concomitant]
  11. CALCIUM GLUCONATE [Concomitant]
  12. NATURAL NUTRITION ECINACEA COMPLEX 9ECHINACEA SPP.) [Concomitant]
  13. BENADRYL [Concomitant]
  14. PLAVIX [Concomitant]
  15. ASPIRIN [Concomitant]

REACTIONS (11)
  - ADRENAL INSUFFICIENCY [None]
  - CYST [None]
  - ECHOCARDIOGRAM ABNORMAL [None]
  - ESCHERICHIA URINARY TRACT INFECTION [None]
  - HYPOTENSION [None]
  - LOSS OF CONSCIOUSNESS [None]
  - NAUSEA [None]
  - RENAL FAILURE ACUTE [None]
  - SYNCOPE [None]
  - UROSEPSIS [None]
  - VOMITING [None]
